FAERS Safety Report 5229043-5 (Version None)
Quarter: 2007Q1

REPORT INFORMATION
  Report Type: 
  Country: None (occurrence: None)
  Receive Date: 20070205
  Receipt Date: 20070202
  Transmission Date: 20070707
  Serious: Yes (Other)
  Sender: FDA-Public Use
  Company Number: US-GLAXOSMITHKLINE-A0637926A

PATIENT
  Age: 45 Year
  Sex: Male

DRUGS (4)
  1. NICORETTE [Suspect]
     Indication: SMOKING CESSATION THERAPY
     Dosage: 2MG SEE DOSAGE TEXT
     Route: 002
  2. NICORETTE [Suspect]
     Indication: SMOKING CESSATION THERAPY
     Dosage: 4MG SEE DOSAGE TEXT
     Route: 002
  3. NORVASC [Concomitant]
  4. AVAPRO [Concomitant]

REACTIONS (5)
  - DEPENDENCE [None]
  - HEART RATE INCREASED [None]
  - INTENTIONAL DRUG MISUSE [None]
  - OVERDOSE [None]
  - PHARMACEUTICAL PRODUCT COMPLAINT [None]
